FAERS Safety Report 25250346 (Version 2)
Quarter: 2025Q2

REPORT INFORMATION
  Report Type: Spontaneous
  Country: US (occurrence: US)
  Receive Date: 20250429
  Receipt Date: 20250513
  Transmission Date: 20250717
  Serious: Yes (Death, Hospitalization)
  Sender: ITALFARMACO SPA
  Company Number: US-ITALFARMACO SPA-2175820

PATIENT
  Age: 11 Year
  Sex: Male

DRUGS (7)
  1. DUVYZAT [Suspect]
     Active Substance: GIVINOSTAT
  2. AGAMREE [Concomitant]
     Active Substance: VAMOROLONE
  3. ALDACTONE [Concomitant]
     Active Substance: SPIRONOLACTONE
  4. VALSARTAN [Concomitant]
     Active Substance: VALSARTAN
  5. ENTRESTO [Concomitant]
     Active Substance: SACUBITRIL\VALSARTAN
  6. LASIX [Concomitant]
     Active Substance: FUROSEMIDE
  7. ASPIRIN [Concomitant]
     Active Substance: ASPIRIN

REACTIONS (7)
  - Cardiac arrest [Fatal]
  - Bobble-head doll syndrome [Unknown]
  - Orthopnoea [Unknown]
  - Productive cough [Unknown]
  - Pyrexia [Unknown]
  - Ventricular tachycardia [Fatal]
  - Cardiac disorder [Fatal]

NARRATIVE: CASE EVENT DATE: 20250404
